FAERS Safety Report 9672425 (Version 1)
Quarter: 2013Q4

REPORT INFORMATION
  Report Type: Spontaneous
  Country: NL (occurrence: NL)
  Receive Date: 20131106
  Receipt Date: 20131106
  Transmission Date: 20140711
  Serious: Yes (Life-Threatening, Other)
  Sender: FDA-Public Use
  Company Number: NL-PFIZER INC-2013315559

PATIENT
  Age: 54 Year
  Sex: Male
  Weight: 70 kg

DRUGS (1)
  1. EFEXOR XR [Suspect]
     Dosage: 75 MG, 1X/DAY
     Dates: start: 20040928, end: 20060414

REACTIONS (4)
  - Aggression [Recovered/Resolved]
  - Physical assault [Recovered/Resolved]
  - Feeling abnormal [Recovered/Resolved]
  - Stress [Recovered/Resolved]
